FAERS Safety Report 9614338 (Version 2)
Quarter: 2013Q4

REPORT INFORMATION
  Report Type: Report from Study
  Country: CA (occurrence: CA)
  Receive Date: 20131011
  Receipt Date: 20131209
  Transmission Date: 20140711
  Serious: Yes (Hospitalization)
  Sender: FDA-Public Use
  Company Number: CA-JNJFOC-20131004003

PATIENT
  Age: 20 Year
  Sex: Female

DRUGS (5)
  1. SIMPONI [Suspect]
     Indication: CROHN^S DISEASE
     Route: 058
  2. SIMPONI [Suspect]
     Indication: CROHN^S DISEASE
     Route: 058
     Dates: start: 20130725
  3. FISH OIL [Concomitant]
     Route: 065
  4. METHOTREXATE [Concomitant]
     Dosage: 20 AND 25 MG ALTERNATE WEEKS
     Route: 048
  5. FOLIC ACID [Concomitant]
     Route: 065

REACTIONS (3)
  - Dehydration [Recovered/Resolved]
  - Gastroenteritis viral [Recovered/Resolved]
  - Off label use [Unknown]
